FAERS Safety Report 7502116-X (Version None)
Quarter: 2011Q2

REPORT INFORMATION
  Report Type: 
  Country: None (occurrence: None)
  Receive Date: 20110525
  Receipt Date: 20110517
  Transmission Date: 20111010
  Serious: Yes (Death, Hospitalization)
  Sender: FDA-Public Use
  Company Number: FR-BAYER-201025048GPV

PATIENT
  Age: 62 Year
  Sex: Male

DRUGS (8)
  1. NEXAVAR [Suspect]
     Dosage: 400 MG (DAILY DOSE), QD, ORAL
     Route: 048
     Dates: start: 20091107, end: 20091114
  2. COLCHIMAX [COLCHICINE,DICYCLOVERINE HYDROCHLORIDE] [Concomitant]
     Dosage: UNK
     Dates: start: 20091130, end: 20091222
  3. NEXAVAR [Suspect]
     Indication: HEPATIC NEOPLASM MALIGNANT
     Dosage: 800 MG (DAILY DOSE), QD, ORAL
     Route: 048
     Dates: start: 20091010, end: 20091031
  4. NEXAVAR [Suspect]
     Dosage: 400 MG (DAILY DOSE), QD, ORAL
     Route: 048
     Dates: start: 20091101, end: 20091104
  5. RAMIPRIL [Concomitant]
     Dosage: 1.25 MG (DAILY DOSE), QD,
     Dates: start: 20091130, end: 20091215
  6. ALLOPURINOL [Concomitant]
     Dosage: 100 MG (DAILY DOSE), QD,
     Dates: start: 20091207, end: 20091228
  7. ZOLPIDEM [Concomitant]
     Dosage: 10 MG (DAILY DOSE), QD,
     Dates: start: 20091130, end: 20091215
  8. FOLIC ACID [Concomitant]
     Dosage: 5 MG (DAILY DOSE), QD,
     Dates: start: 20091130, end: 20091228

REACTIONS (5)
  - JAUNDICE [None]
  - FALL [None]
  - ASCITES [None]
  - SYNCOPE [None]
  - GENERAL PHYSICAL HEALTH DETERIORATION [None]
